FAERS Safety Report 21701281 (Version 1)
Quarter: 2022Q4

REPORT INFORMATION
  Report Type: Spontaneous
  Country: FR (occurrence: FR)
  Receive Date: 20221208
  Receipt Date: 20221208
  Transmission Date: 20230113
  Serious: Yes (Hospitalization)
  Sender: FDA-Public Use
  Company Number: None

PATIENT
  Age: 49 Year
  Sex: Male
  Weight: 173.9 kg

DRUGS (5)
  1. LINEZOLID [Suspect]
     Active Substance: LINEZOLID
     Indication: Chronic obstructive pulmonary disease
     Dosage: 1200 MILLIGRAM DAILY; 600MG *2/D, DURATION : 4 DAYS
     Route: 065
     Dates: start: 20221102, end: 20221106
  2. FLUCONAZOLE [Suspect]
     Active Substance: FLUCONAZOLE
     Indication: Chronic obstructive pulmonary disease
     Dosage: 800 MILLIGRAM DAILY;  DURATIONS : 4 DAYS, 800MG *1/D,
     Route: 065
     Dates: start: 20221102, end: 20221106
  3. METRONIDAZOLE [Suspect]
     Active Substance: METRONIDAZOLE
     Indication: Chronic obstructive pulmonary disease
     Dosage: 1500 MILLIGRAM DAILY; 500MG*3/D, DURATION : 4 DAYS
     Dates: start: 20221102, end: 20221106
  4. AUGMENTIN [Suspect]
     Active Substance: AMOXICILLIN\CLAVULANATE POTASSIUM
     Indication: Chronic obstructive pulmonary disease
     Dosage: 6 GRAM DAILY; 2G *3/D , STRENGTH : 2 G/200 MG, DURATION : 2 DAYS
     Route: 042
     Dates: start: 20221106, end: 20221108
  5. PIPERACILLIN SODIUM\TAZOBACTAM SODIUM [Suspect]
     Active Substance: PIPERACILLIN SODIUM\TAZOBACTAM SODIUM
     Indication: Chronic obstructive pulmonary disease
     Dosage: 4G*4/D, STRENGTH : 4 G/500 MG , DURATION : 4 DAYS
     Dates: start: 20221102, end: 20221106

REACTIONS (1)
  - Rash erythematous [Recovering/Resolving]

NARRATIVE: CASE EVENT DATE: 20221107
